FAERS Safety Report 8237288-5 (Version None)
Quarter: 2012Q1

REPORT INFORMATION
  Report Type: 
  Country: None (occurrence: None)
  Receive Date: 20120327
  Receipt Date: 20120304
  Transmission Date: 20120608
  Serious: No
  Sender: FDA-Public Use
  Company Number: US-ROXANE LABORATORIES, INC.-2012-RO-00807RO

PATIENT

DRUGS (1)
  1. FLUTICASONE FUROATE [Suspect]
     Route: 045
     Dates: start: 20120304

REACTIONS (1)
  - DIZZINESS [None]
